FAERS Safety Report 5865059-3 (Version None)
Quarter: 2008Q3

REPORT INFORMATION
  Report Type: 
  Country: None (occurrence: None)
  Receive Date: 20080829
  Receipt Date: 20080822
  Transmission Date: 20090109
  Serious: Yes (Hospitalization)
  Sender: FDA-Public Use
  Company Number: A0730955A

PATIENT
  Age: 62 Year
  Sex: Male
  Weight: 113.6 kg

DRUGS (4)
  1. AVANDIA [Suspect]
     Dosage: 4MG PER DAY
     Route: 048
     Dates: start: 20040101, end: 20070101
  2. GLUCOPHAGE [Concomitant]
     Dates: start: 20030101, end: 20050101
  3. METFORMIN HCL [Concomitant]
     Dates: start: 20030101, end: 20050101
  4. GLUCOTROL XL [Concomitant]
     Dates: start: 20050101, end: 20070101

REACTIONS (4)
  - CEREBROVASCULAR ACCIDENT [None]
  - INJURY [None]
  - PAIN [None]
  - PULMONARY HYPERTENSION [None]
